FAERS Safety Report 5098857-7 (Version None)
Quarter: 2006Q3

REPORT INFORMATION
  Report Type: 
  Country: None (occurrence: None)
  Receive Date: 20060907
  Receipt Date: 20060830
  Transmission Date: 20061208
  Serious: Yes (Death, Hospitalization)
  Sender: FDA-Public Use
  Company Number: US-MERCK-0609USA00597

PATIENT
  Age: 55 Year
  Sex: Male

DRUGS (3)
  1. DECADRON [Suspect]
     Indication: HYDROCEPHALUS
     Route: 048
  2. SULFAMETHOXAZOLE AND TRIMETHOPRIM [Concomitant]
     Indication: PROPHYLAXIS
     Route: 065
  3. LOVENOX [Concomitant]
     Route: 065

REACTIONS (5)
  - DEATH [None]
  - GLIOBLASTOMA MULTIFORME [None]
  - HYDROCEPHALUS [None]
  - PNEUMOCYSTIS JIROVECI PNEUMONIA [None]
  - STRONGYLOIDIASIS [None]
